FAERS Safety Report 20587239 (Version 1)
Quarter: 2022Q1

REPORT INFORMATION
  Report Type: Spontaneous
  Country: US (occurrence: US)
  Receive Date: 20220314
  Receipt Date: 20220314
  Transmission Date: 20220423
  Serious: Yes (Life-Threatening, Hospitalization, Other)
  Sender: FDA-Public Use
  Company Number: US-drreddys-SPO/USA/22/0147505

PATIENT
  Age: 70 Year
  Sex: Female

DRUGS (1)
  1. DEXAMETHASONE SODIUM PHOSPHATE [Suspect]
     Active Substance: DEXAMETHASONE SODIUM PHOSPHATE
     Indication: Back pain

REACTIONS (4)
  - Coronary artery stenosis [Recovering/Resolving]
  - Hyperglycaemia [Recovering/Resolving]
  - Left ventricular hypertrophy [Recovering/Resolving]
  - Acute myocardial infarction [Recovering/Resolving]
